FAERS Safety Report 21355765 (Version 1)
Quarter: 2022Q3

REPORT INFORMATION
  Report Type: Spontaneous
  Country: US (occurrence: US)
  Receive Date: 20220920
  Receipt Date: 20220920
  Transmission Date: 20221027
  Serious: No
  Sender: FDA-Public Use
  Company Number: US-THERAPEUTICSMD-2021TMD02778

PATIENT
  Sex: Female
  Weight: 70.295 kg

DRUGS (6)
  1. ANNOVERA [Suspect]
     Active Substance: ETHINYL ESTRADIOL\SEGESTERONE ACETATE
     Indication: Contraception
     Dosage: 1 RING, LEAVE FOR 3 WEEKS AND REMOVE FOR 1 WEEK, REPEAT FOR UP TO 13 CYCLES
     Route: 067
     Dates: start: 2020
  2. ANNOVERA [Suspect]
     Active Substance: ETHINYL ESTRADIOL\SEGESTERONE ACETATE
     Indication: Generalised tonic-clonic seizure
  3. TOPAMAX [Concomitant]
     Active Substance: TOPIRAMATE
  4. TRILEPTAL [Concomitant]
     Active Substance: OXCARBAZEPINE
  5. ADDERALL [Concomitant]
     Active Substance: AMPHETAMINE ASPARTATE\AMPHETAMINE SULFATE\DEXTROAMPHETAMINE SACCHARATE\DEXTROAMPHETAMINE SULFATE
  6. HYDROXYZINE [Concomitant]
     Active Substance: HYDROXYZINE HYDROCHLORIDE

REACTIONS (5)
  - Intermenstrual bleeding [Recovered/Resolved]
  - Nausea [Recovered/Resolved]
  - Vaginal discharge [Recovered/Resolved]
  - Therapeutic response unexpected [Not Recovered/Not Resolved]
  - Intentional product misuse [Recovered/Resolved]

NARRATIVE: CASE EVENT DATE: 20200101
